FAERS Safety Report 9799114 (Version 2)
Quarter: 2014Q1

REPORT INFORMATION
  Report Type: Spontaneous
  Country: US (occurrence: US)
  Receive Date: 20140106
  Receipt Date: 20140106
  Transmission Date: 20141002
  Serious: No
  Sender: FDA-Public Use
  Company Number: US-GILEAD-2010-0032324

PATIENT
  Age: 74 Year
  Sex: Female
  Weight: 65.32 kg

DRUGS (23)
  1. LETAIRIS [Suspect]
     Indication: PULMONARY ARTERIAL HYPERTENSION
     Route: 048
     Dates: start: 20100910, end: 20101001
  2. NITROGLYCERIN [Concomitant]
  3. COUMADIN [Concomitant]
  4. LASIX [Concomitant]
  5. QVAR [Concomitant]
  6. PREDNISONE [Concomitant]
  7. RHINOCORT AQUA [Concomitant]
  8. SYMAX-SR [Concomitant]
  9. ALIGN [Concomitant]
  10. ASACOL [Concomitant]
  11. MECLIZINE [Concomitant]
  12. NEXIUM [Concomitant]
  13. ZANTAC [Concomitant]
  14. TRAMADOL [Concomitant]
  15. VICODIN [Concomitant]
  16. GABAPENTIN [Concomitant]
  17. LAMICTAL [Concomitant]
  18. LITHIUM [Concomitant]
  19. CITALOPRAM [Concomitant]
  20. CYMBALTA [Concomitant]
  21. SYNTHROID [Concomitant]
  22. VITAMIN D [Concomitant]
  23. MULTIVITAMIN [Concomitant]

REACTIONS (1)
  - Diarrhoea [Recovered/Resolved]
